FAERS Safety Report 6831390-8 (Version None)
Quarter: 2010Q3

REPORT INFORMATION
  Report Type: 
  Country: None (occurrence: None)
  Receive Date: 20100712
  Receipt Date: 20100708
  Transmission Date: 20110219
  Serious: Yes (Hospitalization)
  Sender: FDA-Public Use
  Company Number: DE-SANOFI-AVENTIS-2010SA036410

PATIENT
  Age: 75 Year
  Sex: Female
  Weight: 84 kg

DRUGS (7)
  1. TAXOTERE [Suspect]
     Indication: BREAST CANCER
     Route: 041
     Dates: start: 20100609, end: 20100609
  2. TRASTUZUMAB [Suspect]
     Indication: BREAST CANCER
     Route: 042
     Dates: start: 20100609, end: 20100609
  3. DEXAMETHASONE ACETATE [Concomitant]
     Indication: PROPHYLAXIS
     Dosage: 0-0-1
     Route: 048
     Dates: start: 20100609, end: 20100609
  4. DEXAMETHASONE ACETATE [Concomitant]
     Dates: start: 20100609, end: 20100609
  5. SODIUM CHLORIDE [Concomitant]
     Indication: PROPHYLAXIS
     Dates: start: 20100609, end: 20100609
  6. FENISTIL [Concomitant]
     Indication: PROPHYLAXIS
     Dosage: 1-0-0
     Route: 048
     Dates: start: 20100609, end: 20100609
  7. ACETAMINOPHEN [Concomitant]
     Dosage: 1-1-1
     Dates: start: 20100609, end: 20100609

REACTIONS (7)
  - DIARRHOEA [None]
  - GENERAL PHYSICAL HEALTH DETERIORATION [None]
  - IMPAIRED HEALING [None]
  - LEUKOPENIA [None]
  - NAUSEA [None]
  - NEUTROPENIA [None]
  - VOMITING [None]
